FAERS Safety Report 7831451-0 (Version None)
Quarter: 2011Q4

REPORT INFORMATION
  Report Type: 
  Country: None (occurrence: None)
  Receive Date: 20111021
  Receipt Date: 20111013
  Transmission Date: 20120403
  Serious: Yes (Hospitalization)
  Sender: FDA-Public Use
  Company Number: CH-JNJFOC-20111005551

PATIENT
  Age: 63 Year
  Sex: Female
  Weight: 75 kg

DRUGS (12)
  1. LORAZEPAM [Concomitant]
     Route: 048
     Dates: start: 20110823, end: 20110906
  2. DALMADORM [Concomitant]
     Route: 048
     Dates: end: 20110814
  3. LORAZEPAM [Concomitant]
     Route: 048
     Dates: end: 20110814
  4. AURORIX [Concomitant]
     Route: 048
     Dates: end: 20110814
  5. MAGNESIOCARD [Concomitant]
     Route: 048
     Dates: end: 20110814
  6. LORAZEPAM [Concomitant]
     Route: 048
     Dates: start: 20110818, end: 20110821
  7. LYRICA [Concomitant]
     Route: 048
     Dates: end: 20110814
  8. INVEGA [Suspect]
     Indication: PRODUCT USED FOR UNKNOWN INDICATION
     Route: 048
     Dates: end: 20110816
  9. DIPIPERON [Suspect]
     Indication: PRODUCT USED FOR UNKNOWN INDICATION
     Route: 048
     Dates: end: 20110816
  10. LORAZEPAM [Concomitant]
     Route: 048
     Dates: start: 20110815, end: 20110818
  11. DALMADORM [Concomitant]
     Route: 048
     Dates: end: 20110814
  12. NEXIUM [Concomitant]
     Route: 048
     Dates: end: 20110814

REACTIONS (2)
  - STUPOR [None]
  - PARKINSONISM [None]
